FAERS Safety Report 12641222 (Version 2)
Quarter: 2016Q3

REPORT INFORMATION
  Report Type: Spontaneous
  Country: US (occurrence: US)
  Receive Date: 20160810
  Receipt Date: 20160829
  Transmission Date: 20161109
  Serious: No
  Sender: FDA-Public Use
  Company Number: US-PFIZER INC-2016363178

PATIENT
  Age: 35 Year
  Sex: Female

DRUGS (1)
  1. TETRACYCLINE HCL [Suspect]
     Active Substance: TETRACYCLINE HYDROCHLORIDE
     Indication: INFLUENZA
     Dosage: UNK
     Dates: start: 197204

REACTIONS (1)
  - Lactose intolerance [Not Recovered/Not Resolved]

NARRATIVE: CASE EVENT DATE: 19720502
